FAERS Safety Report 21973156 (Version 1)
Quarter: 2023Q1

REPORT INFORMATION
  Report Type: Spontaneous
  Country: FR (occurrence: FR)
  Receive Date: 20230209
  Receipt Date: 20230209
  Transmission Date: 20230418
  Serious: Yes (Hospitalization)
  Sender: FDA-Public Use
  Company Number: FR-009507513-2301FRA003111

PATIENT
  Age: 78 Year
  Sex: Male

DRUGS (4)
  1. AZITHROMYCIN [Suspect]
     Active Substance: AZITHROMYCIN
     Indication: COVID-19
     Dosage: UNK
     Route: 065
     Dates: start: 202104
  2. STROMECTOL [Suspect]
     Active Substance: IVERMECTIN
     Indication: COVID-19
     Dosage: 0.2 MG/KG/DAY, DAY 1
     Route: 048
     Dates: start: 202104
  3. STROMECTOL [Suspect]
     Active Substance: IVERMECTIN
     Dosage: 0.2 MG/KG/DAY, DAY 8
     Route: 048
     Dates: start: 202104
  4. STROMECTOL [Suspect]
     Active Substance: IVERMECTIN
     Dosage: 0.2 MG/KG/DAY, DAY 4
     Route: 048
     Dates: start: 202104

REACTIONS (4)
  - COVID-19 [Recovered/Resolved]
  - Drug effective for unapproved indication [Unknown]
  - Drug ineffective for unapproved indication [Unknown]
  - Product use in unapproved indication [Unknown]

NARRATIVE: CASE EVENT DATE: 20210401
